FAERS Safety Report 5684622-6 (Version None)
Quarter: 2008Q1

REPORT INFORMATION
  Report Type: 
  Country: None (occurrence: None)
  Receive Date: 20080328
  Receipt Date: 20080320
  Transmission Date: 20080703
  Serious: Yes (Other)
  Sender: FDA-Public Use
  Company Number: ZA-ROCHE-550675

PATIENT
  Sex: Female

DRUGS (2)
  1. XELODA [Suspect]
     Indication: COLON CANCER
     Route: 065
  2. UNSPECIFIED DRUGS [Concomitant]
     Dosage: PATIENT IS ON ^CHRONIC MEDICATIONS WHICH SHE HAS BEEN ON FOR A WHILE^

REACTIONS (4)
  - NERVE COMPRESSION [None]
  - NERVE DEGENERATION [None]
  - NEUROPATHY PERIPHERAL [None]
  - PERONEAL NERVE PALSY [None]
